FAERS Safety Report 10464781 (Version 1)
Quarter: 2014Q3

REPORT INFORMATION
  Report Type: Spontaneous
  Country: US (occurrence: US)
  Receive Date: 20140919
  Receipt Date: 20140919
  Transmission Date: 20150326
  Serious: No
  Sender: FDA-Public Use
  Company Number: US-TEVA-510586USA

PATIENT
  Sex: Female

DRUGS (1)
  1. TAKE ACTION [Suspect]
     Active Substance: LEVONORGESTREL
     Indication: POST COITAL CONTRACEPTION
     Dosage: 1.5 MILLIGRAM DAILY;
     Route: 048

REACTIONS (4)
  - Abdominal distension [Not Recovered/Not Resolved]
  - Breast pain [Not Recovered/Not Resolved]
  - Breast discomfort [Not Recovered/Not Resolved]
  - Back pain [Not Recovered/Not Resolved]
